FAERS Safety Report 24059441 (Version 1)
Quarter: 2024Q3

REPORT INFORMATION
  Report Type: Spontaneous
  Country: IT (occurrence: IT)
  Receive Date: 20240708
  Receipt Date: 20240708
  Transmission Date: 20241016
  Serious: Yes (Hospitalization)
  Sender: TEVA
  Company Number: None

PATIENT
  Age: 44 Year
  Sex: Female

DRUGS (2)
  1. AMOXICILLIN\CLAVULANIC ACID [Suspect]
     Active Substance: AMOXICILLIN\CLAVULANIC ACID
     Indication: Dental operation
     Dosage: FOLLOWING DENTAL SURGERY, AMOXICILLIN/AC.CLAV IS PRESCRIBED 1000 MG TABLETS TWICE A DAY FOR 5 DAY...
     Route: 048
     Dates: start: 20240614, end: 20240614
  2. LEVOTHYROXINE SODIUM [Concomitant]
     Active Substance: LEVOTHYROXINE SODIUM
     Indication: Post procedural hypothyroidism
     Dosage: 125MCG/DAY
     Route: 048

REACTIONS (7)
  - Eyelid oedema [Recovered/Resolved]
  - Syncope [Recovered/Resolved]
  - Nausea [Recovered/Resolved]
  - Tachycardia [Recovered/Resolved]
  - Chills [Recovered/Resolved]
  - Vomiting [Recovered/Resolved]
  - Hyperaemia [Recovered/Resolved]

NARRATIVE: CASE EVENT DATE: 20240614
